FAERS Safety Report 4649913-6 (Version None)
Quarter: 2005Q2

REPORT INFORMATION
  Report Type: 
  Country: None (occurrence: None)
  Receive Date: 20050428
  Receipt Date: 20050418
  Transmission Date: 20051028
  Serious: No
  Sender: FDA-Public Use
  Company Number: 2005AC00428

PATIENT
  Age: 68 Year
  Sex: Male

DRUGS (4)
  1. ZESTRIL [Suspect]
     Indication: HYPERTENSION
     Dosage: 5 MG DAILY PO
     Route: 048
     Dates: start: 20020301, end: 20040101
  2. ZESTRIL [Suspect]
     Indication: HYPERTENSION
     Dosage: 5 MG DAILY PO
     Route: 048
  3. LISINOPRIL [Suspect]
     Indication: HYPERTENSION
     Dates: start: 20040101
  4. LIPITOR [Suspect]

REACTIONS (4)
  - MUSCULAR WEAKNESS [None]
  - MYALGIA [None]
  - MYOPATHY [None]
  - PHARMACEUTICAL PRODUCT COMPLAINT [None]
